FAERS Safety Report 5246891-6 (Version None)
Quarter: 2007Q1

REPORT INFORMATION
  Report Type: 
  Country: None (occurrence: None)
  Receive Date: 20070226
  Receipt Date: 20070214
  Transmission Date: 20070707
  Serious: Yes (Disabling, Other)
  Sender: FDA-Public Use
  Company Number: US-PFIZER INC-2007012523

PATIENT
  Sex: Female
  Weight: 58.5 kg

DRUGS (3)
  1. CHANTIX [Suspect]
     Indication: SMOKING CESSATION THERAPY
     Dates: start: 20070101, end: 20070212
  2. VITAMINS [Concomitant]
  3. ASPIRIN [Concomitant]

REACTIONS (7)
  - ASTHENIA [None]
  - BLINDNESS TRANSIENT [None]
  - DIARRHOEA [None]
  - DIZZINESS [None]
  - FEAR OF DEATH [None]
  - MALAISE [None]
  - SOMNOLENCE [None]
